FAERS Safety Report 7417250-2 (Version None)
Quarter: 2011Q2

REPORT INFORMATION
  Report Type: 
  Country: None (occurrence: None)
  Receive Date: 20110415
  Receipt Date: 20101102
  Transmission Date: 20111010
  Serious: Yes (Other)
  Sender: FDA-Public Use
  Company Number: US-BAYER-201014024NA

PATIENT
  Age: 23 Year
  Sex: Female
  Weight: 72.727 kg

DRUGS (7)
  1. AMBIEN [Concomitant]
     Dates: start: 20080801
  2. PHENTERMINE [Concomitant]
     Indication: OBESITY
     Dates: start: 20081101
  3. OCELLA [Suspect]
     Indication: ORAL CONTRACEPTION
     Route: 048
     Dates: start: 20081001, end: 20091001
  4. YASMIN [Suspect]
     Route: 048
     Dates: start: 20081218
  5. ORTHO TRI-CYCLEN [Concomitant]
  6. YAZ [Suspect]
     Route: 048
  7. OCELLA [Suspect]
     Indication: ACNE

REACTIONS (5)
  - BACK PAIN [None]
  - GALLBLADDER DISORDER [None]
  - ABDOMINAL PAIN UPPER [None]
  - CHEST PAIN [None]
  - CHOLELITHIASIS [None]
